FAERS Safety Report 17113306 (Version 1)
Quarter: 2019Q4

REPORT INFORMATION
  Report Type: Report from Study
  Country: None (occurrence: DE)
  Receive Date: 20191204
  Receipt Date: 20191204
  Transmission Date: 20200122
  Serious: Yes (Disabling)
  Sender: FDA-Public Use
  Company Number: DE-ABBVIE-19K-062-3176601-00

PATIENT
  Age: 40 Year
  Sex: Female

DRUGS (10)
  1. METHOTREXAT [Suspect]
     Active Substance: METHOTREXATE
     Route: 065
     Dates: start: 200812, end: 200908
  2. HUMIRA [Suspect]
     Active Substance: ADALIMUMAB
     Dosage: EVERY 1.4 WEEKS
     Route: 058
  3. SULFASALAZINE DELAYED-RELEASE [Concomitant]
     Active Substance: SULFASALAZINE
     Indication: PRODUCT USED FOR UNKNOWN INDICATION
     Dates: start: 200908, end: 200908
  4. HUMIRA [Suspect]
     Active Substance: ADALIMUMAB
     Route: 058
     Dates: start: 201906
  5. METHOTREXAT [Suspect]
     Active Substance: METHOTREXATE
     Indication: JUVENILE IDIOPATHIC ARTHRITIS
     Route: 065
     Dates: start: 200011, end: 200812
  6. METHOTREXAT [Suspect]
     Active Substance: METHOTREXATE
     Route: 065
     Dates: start: 201309
  7. XELJANZ [Concomitant]
     Active Substance: TOFACITINIB CITRATE
     Indication: PRODUCT USED FOR UNKNOWN INDICATION
     Dates: start: 201710, end: 201804
  8. OLUMIANT [Concomitant]
     Active Substance: BARICITINIB
     Indication: PRODUCT USED FOR UNKNOWN INDICATION
     Dates: start: 201804
  9. HUMIRA [Suspect]
     Active Substance: ADALIMUMAB
     Indication: JUVENILE IDIOPATHIC ARTHRITIS
     Route: 058
     Dates: start: 200404
  10. HUMIRA [Suspect]
     Active Substance: ADALIMUMAB
     Route: 058
     Dates: end: 201709

REACTIONS (2)
  - Radial nerve palsy [Recovered/Resolved with Sequelae]
  - Monoplegia [Recovered/Resolved with Sequelae]

NARRATIVE: CASE EVENT DATE: 20190808
